FAERS Safety Report 8614683 (Version 4)
Quarter: 2013Q2

REPORT INFORMATION
  Report Type: Report from Study
  Country: CA (occurrence: CA)
  Receive Date: 20120614
  Receipt Date: 20130628
  Transmission Date: 20140414
  Serious: Yes (Other)
  Sender: FDA-Public Use
  Company Number: PHHY2010CA22433

PATIENT
  Age: 45 Year
  Sex: Female

DRUGS (6)
  1. EXJADE [Suspect]
     Indication: CONGENITAL APLASTIC ANAEMIA
     Dosage: 2000 MG, UNK
     Route: 048
     Dates: start: 200709
  2. EXJADE [Suspect]
     Dosage: 1250 MG, UNK
  3. EXJADE [Suspect]
     Dosage: UNK UKN, UNK
  4. EXJADE [Suspect]
     Dosage: 1000 MG, UNK
     Route: 048
     Dates: end: 20130527
  5. ATENOLOL [Concomitant]
  6. VENTOLIN [Concomitant]

REACTIONS (10)
  - Mycobacterium avium complex infection [Unknown]
  - Pulmonary mass [Unknown]
  - Hepatic cirrhosis [Unknown]
  - Hepatic siderosis [Unknown]
  - Haemosiderosis [Unknown]
  - Weight decreased [Unknown]
  - Heart rate decreased [Unknown]
  - Confusional state [Unknown]
  - Serum ferritin decreased [Unknown]
  - Dizziness [Unknown]
